FAERS Safety Report 8322091-8 (Version None)
Quarter: 2012Q2

REPORT INFORMATION
  Report Type: 
  Country: None (occurrence: None)
  Receive Date: 20120430
  Receipt Date: 20120420
  Transmission Date: 20120825
  Serious: Yes (Hospitalization)
  Sender: FDA-Public Use
  Company Number: FR-ROCHE-1061958

PATIENT
  Age: 57 Year
  Sex: Male

DRUGS (5)
  1. MORPHINE SULFATE [Concomitant]
     Route: 048
     Dates: start: 20111212
  2. DURAGESIC-100 [Concomitant]
     Route: 062
     Dates: start: 20110620
  3. CYMBALTA [Suspect]
     Indication: PRODUCT USED FOR UNKNOWN INDICATION
     Route: 048
     Dates: start: 20110620, end: 20120130
  4. IMOVANE [Suspect]
     Indication: PRODUCT USED FOR UNKNOWN INDICATION
     Route: 048
     Dates: start: 20111130
  5. CLONAZEPAM [Suspect]
     Indication: PRODUCT USED FOR UNKNOWN INDICATION
     Route: 048
     Dates: start: 20101017

REACTIONS (2)
  - RHABDOMYOLYSIS [None]
  - HEPATOCELLULAR INJURY [None]
